FAERS Safety Report 8440090-2 (Version None)
Quarter: 2012Q2

REPORT INFORMATION
  Report Type: 
  Country: None (occurrence: None)
  Receive Date: 20120615
  Receipt Date: 20120605
  Transmission Date: 20120825
  Serious: Yes (Hospitalization)
  Sender: FDA-Public Use
  Company Number: US-ELI_LILLY_AND_COMPANY-US201206002096

PATIENT
  Sex: Female

DRUGS (3)
  1. FORTEO [Suspect]
     Indication: OSTEOPOROSIS
     Dosage: 20 UG, QD
     Dates: start: 20120427
  2. FORTEO [Suspect]
     Dosage: 20 UG, QD
     Dates: start: 20120427
  3. EXTRA STRENGTH TYLENOL [Concomitant]
     Dosage: UNK

REACTIONS (9)
  - NERVOUSNESS [None]
  - NAUSEA [None]
  - MUSCLE SPASMS [None]
  - DIZZINESS [None]
  - PAIN [None]
  - TREMOR [None]
  - ANXIETY [None]
  - HYPERTENSION [None]
  - DECREASED APPETITE [None]
